FAERS Safety Report 5755785-9 (Version None)
Quarter: 2008Q2

REPORT INFORMATION
  Report Type: 
  Country: None (occurrence: None)
  Receive Date: 20080602
  Receipt Date: 20080520
  Transmission Date: 20081010
  Serious: Yes (Death, Other)
  Sender: FDA-Public Use
  Company Number: PHHY2008CA06190

PATIENT
  Sex: Female

DRUGS (24)
  1. CLOZARIL [Suspect]
     Indication: SCHIZOPHRENIA
     Dosage: 275 MG, UNK
     Dates: start: 19931125, end: 20080419
  2. ALENDRONATE SODIUM [Concomitant]
     Dosage: 1 DF, QW
  3. ACETYLSALICYLIC ACID SRT [Concomitant]
     Dosage: 1 DF, QD
  4. SELEGILINE HYDROCHLORIDE [Concomitant]
     Dosage: 2 DF, QD
  5. TRAMADOL HCL [Concomitant]
     Dosage: 1 DF, QD
  6. TRANDOLAPRIL [Concomitant]
     Dosage: 1 DF, QD
  7. VITAMIN D [Concomitant]
     Dosage: 2 DF, QD
  8. RABEPRAZOLE SODIUM [Concomitant]
     Dosage: 1 DF, BID
  9. CARBIDOPA AND LEVODOPA [Concomitant]
     Dosage: 100 MG
  10. CARBIDOPA AND LEVODOPA [Concomitant]
     Dosage: 25 MG
  11. METFORMIN HYDROCHLORIDE [Concomitant]
     Dosage: 1 DF, BID
  12. SENNOSIDES A+B [Concomitant]
     Dosage: 2 DF, BID
  13. TUMS [Concomitant]
     Dosage: 1 DF, TID
  14. RIVASTATIN CALCIUM [Concomitant]
     Dosage: 1 DF, QD
  15. CLOZAPINE [Concomitant]
     Dosage: 100 MG TWICE, QD
  16. CLOZAPINE [Concomitant]
     Dosage: 25 MG THRICE, QD
  17. FLUTICASONE PROPIONATE [Concomitant]
     Dosage: TWO 250 MCG PUFFS/DAY
  18. SALBUTAMOL SULFATE [Concomitant]
     Dosage: TWO 100 MCG PUFFS/DAY
  19. CYANOCOBALAMIN [Concomitant]
     Dosage: 1000 MCG/ ML, QW
  20. LOPERAMIDE HYDROCHLORIDE [Concomitant]
     Indication: GASTROINTESTINAL PAIN
     Dosage: 1 DF, QD
  21. LACTULOSE [Concomitant]
     Dosage: 30 ML, BID
  22. FLUNISOLIDE [Concomitant]
     Dosage: 0.025 %, QD
  23. ACETAMINOPHEN [Concomitant]
     Indication: BACK PAIN
     Dosage: 1 DF, QD
  24. MAGNESIUM HYDROXIDE TAB [Concomitant]
     Dosage: 30 ML, BID

REACTIONS (5)
  - DEATH [None]
  - HAEMATOCRIT DECREASED [None]
  - HAEMOGLOBIN DECREASED [None]
  - LABORATORY TEST ABNORMAL [None]
  - MALAISE [None]
